FAERS Safety Report 8817028 (Version 1)
Quarter: 2012Q4

REPORT INFORMATION
  Report Type: Spontaneous
  Country: DE (occurrence: None)
  Receive Date: 20121002
  Receipt Date: 20121002
  Transmission Date: 20130627
  Serious: Yes (Other)
  Sender: FDA-Public Use
  Company Number: E2B_00000393

PATIENT
  Sex: Female
  Weight: 71 kg

DRUGS (2)
  1. SERTRALINE [Suspect]
     Indication: DEPRESSION
     Route: 048
     Dates: start: 20110410, end: 20120101
  2. FOLIC ACID [Concomitant]

REACTIONS (3)
  - Placental insufficiency [None]
  - Maternal exposure during pregnancy [None]
  - Assisted delivery [None]
